FAERS Safety Report 21324445 (Version 2)
Quarter: 2022Q3

REPORT INFORMATION
  Report Type: Spontaneous
  Country: CN (occurrence: CN)
  Receive Date: 20220912
  Receipt Date: 20220916
  Transmission Date: 20221027
  Serious: Yes (Death, Hospitalization, Other)
  Sender: FDA-Public Use
  Company Number: CN-MLMSERVICE-20220825-3758120-1

PATIENT
  Age: 40 Year
  Sex: Male

DRUGS (6)
  1. EPIRUBICIN HYDROCHLORIDE [Suspect]
     Active Substance: EPIRUBICIN HYDROCHLORIDE
     Indication: Small cell lung cancer
     Dosage: 120 MG, CYCLIC, ON DAY 1-2
     Route: 042
     Dates: start: 20180801
  2. EPIRUBICIN HYDROCHLORIDE [Suspect]
     Active Substance: EPIRUBICIN HYDROCHLORIDE
     Indication: NUT midline carcinoma
  3. IFOSFAMIDE [Suspect]
     Active Substance: IFOSFAMIDE
     Indication: Small cell lung cancer
     Dosage: 10 G, CYCLIC, IVGTT ON DAY 1-5
     Route: 042
     Dates: start: 20180801
  4. IFOSFAMIDE [Suspect]
     Active Substance: IFOSFAMIDE
     Indication: NUT midline carcinoma
  5. VINCRISTINE [Suspect]
     Active Substance: VINCRISTINE
     Indication: Small cell lung cancer
     Dosage: 2 MG, CYCLIC, ON DAY 1
     Route: 042
     Dates: start: 20180801
  6. VINCRISTINE [Suspect]
     Active Substance: VINCRISTINE
     Indication: NUT midline carcinoma

REACTIONS (2)
  - Neoplasm progression [Fatal]
  - Superior vena cava syndrome [Recovering/Resolving]

NARRATIVE: CASE EVENT DATE: 20180901
